FAERS Safety Report 24308148 (Version 1)
Quarter: 2024Q3

REPORT INFORMATION
  Report Type: Other
  Country: US (occurrence: US)
  Receive Date: 20240911
  Receipt Date: 20240911
  Transmission Date: 20241017
  Serious: No
  Sender: SIGMA TAU
  Company Number: US-LEADIANT BIOSCIENCES, INC.-2024LBI000074

PATIENT
  Sex: Female

DRUGS (1)
  1. MATULANE [Suspect]
     Active Substance: PROCARBAZINE HYDROCHLORIDE
     Indication: Hodgkin^s disease
     Dosage: 50 MILLIGRAMS, 4 CAPSULES (200 MG TOTAL) ONCE DAILY FOR 7 DAYS EVERY 21 DAYS
     Route: 048
     Dates: start: 20231207

REACTIONS (4)
  - Headache [Unknown]
  - Stomatitis [Unknown]
  - Mucosal inflammation [Unknown]
  - Nausea [Unknown]
